FAERS Safety Report 8873416 (Version 1)
Quarter: 2012Q4

REPORT INFORMATION
  Report Type: 
  Country: FR (occurrence: FR)
  Receive Date: 20121030
  Receipt Date: 20121030
  Transmission Date: 20130627
  Serious: Yes (Other)
  Sender: FDA-Public Use
  Company Number: FR-ELI_LILLY_AND_COMPANY-FR201210005876

PATIENT
  Age: 86 Year
  Sex: Male

DRUGS (1)
  1. CIALIS [Suspect]
     Dosage: 20 mg, UNK
     Route: 048

REACTIONS (3)
  - Visual impairment [Unknown]
  - Dizziness [Unknown]
  - Drug ineffective [Unknown]
